FAERS Safety Report 5201814-0 (Version None)
Quarter: 2006Q4

REPORT INFORMATION
  Report Type: 
  Country: None (occurrence: None)
  Receive Date: 20061002
  Receipt Date: 20060427
  Transmission Date: 20070319
  Serious: Yes (Other)
  Sender: FDA-Public Use
  Company Number: US-JNJFOC-20060500069

PATIENT
  Sex: 0

DRUGS (1)
  1. ULTRACET [Suspect]
     Indication: BACK PAIN
     Dosage: 4 IN 1 DAY; SEE IMAGE

REACTIONS (4)
  - ANXIETY [None]
  - CHILLS [None]
  - DRUG WITHDRAWAL SYNDROME [None]
  - PALPITATIONS [None]
